FAERS Safety Report 5155984-3 (Version None)
Quarter: 2006Q4

REPORT INFORMATION
  Report Type: 
  Country: None (occurrence: None)
  Receive Date: 20061122
  Receipt Date: 20060329
  Transmission Date: 20070319
  Serious: Yes (Hospitalization)
  Sender: FDA-Public Use
  Company Number: 2006SE01838

PATIENT
  Age: 1084 Month
  Sex: Male

DRUGS (6)
  1. SEROQUEL [Suspect]
     Indication: HALLUCINATION
     Route: 048
     Dates: start: 20030101, end: 20060203
  2. GEFINA [Concomitant]
  3. LORAZEPAM [Concomitant]
  4. EXPROS [Concomitant]
  5. SERENASE [Concomitant]
  6. FOSAMAX [Concomitant]

REACTIONS (3)
  - BURSITIS [None]
  - LEUKOPENIA [None]
  - THROMBOCYTOPENIA [None]
